FAERS Safety Report 4944913-0 (Version None)
Quarter: 2006Q1

REPORT INFORMATION
  Report Type: 
  Country: None (occurrence: None)
  Receive Date: 20060315
  Receipt Date: 20051031
  Transmission Date: 20060701
  Serious: Yes (Hospitalization)
  Sender: FDA-Public Use
  Company Number: US-MERCK-0511USA00228

PATIENT
  Age: 62 Year
  Sex: Male
  Weight: 75 kg

DRUGS (2)
  1. VIOXX [Suspect]
     Indication: SPINAL OSTEOARTHRITIS
     Route: 048
     Dates: start: 19991202, end: 20020809
  2. VIOXX [Suspect]
     Route: 048
     Dates: start: 19991202, end: 20020809

REACTIONS (15)
  - AGORAPHOBIA [None]
  - ANXIETY [None]
  - BACK PAIN [None]
  - BLOOD SODIUM DECREASED [None]
  - CEREBROVASCULAR ACCIDENT [None]
  - COUGH [None]
  - DYSPNOEA [None]
  - EMOTIONAL DISORDER [None]
  - GASTROINTESTINAL HAEMORRHAGE [None]
  - HEAD INJURY [None]
  - HERNIA REPAIR [None]
  - HYPOAESTHESIA [None]
  - PNEUMONIA [None]
  - SHOULDER PAIN [None]
  - TRANSIENT ISCHAEMIC ATTACK [None]
